FAERS Safety Report 12717413 (Version 2)
Quarter: 2016Q4

REPORT INFORMATION
  Report Type: Spontaneous
  Country: US (occurrence: US)
  Receive Date: 20160906
  Receipt Date: 20161003
  Transmission Date: 20170207
  Serious: Yes (Other)
  Sender: FDA-Public Use
  Company Number: US-JNJFOC-20160712675

PATIENT
  Age: 53 Year
  Sex: Female
  Weight: 102.06 kg

DRUGS (5)
  1. LEVAQUIN [Suspect]
     Active Substance: LEVOFLOXACIN
     Indication: ESCHERICHIA INFECTION
     Dosage: 500MG/100ML RT4
     Route: 042
     Dates: start: 20101222, end: 20110202
  2. OXYCODONE [Concomitant]
     Active Substance: OXYCODONE
     Indication: PAIN
     Route: 065
     Dates: start: 20101122, end: 201107
  3. AMOXICILLIN. [Suspect]
     Active Substance: AMOXICILLIN
     Indication: HIP ARTHROPLASTY
     Route: 065
     Dates: start: 2009, end: 2010
  4. LEVAQUIN [Suspect]
     Active Substance: LEVOFLOXACIN
     Indication: ESCHERICHIA INFECTION
     Route: 042
  5. CRESTOR [Concomitant]
     Active Substance: ROSUVASTATIN CALCIUM
     Indication: BLOOD CHOLESTEROL
     Route: 065
     Dates: start: 2010

REACTIONS (7)
  - Skin disorder [Unknown]
  - Musculoskeletal disorder [Unknown]
  - Visual impairment [Unknown]
  - Cardiovascular disorder [Unknown]
  - Neuropathy peripheral [Not Recovered/Not Resolved]
  - Hypoacusis [Unknown]
  - Mental disorder [Unknown]

NARRATIVE: CASE EVENT DATE: 201012
